FAERS Safety Report 4548018-2 (Version None)
Quarter: 2004Q4

REPORT INFORMATION
  Report Type: 
  Country: None (occurrence: None)
  Receive Date: 20041227
  Receipt Date: 20041019
  Transmission Date: 20050328
  Serious: No
  Sender: FDA-Public Use
  Company Number: 04P-163-0278436-00

PATIENT
  Age: 61 Year
  Sex: Male
  Weight: 111 kg

DRUGS (8)
  1. HUMIRA [Suspect]
     Indication: RHEUMATOID ARTHRITIS
     Dosage: 40 MG, 1 IN 2 WK, SUBCUTANEOUS
     Route: 058
     Dates: start: 20040101, end: 20041012
  2. LEFLUNOMIDE [Concomitant]
  3. ZOCOR [Concomitant]
  4. ACETYLSALICYLIC ACID SRT [Concomitant]
  5. ATENOLOL [Concomitant]
  6. HYDROXYCHLOROQUINE PHOSPHATE [Concomitant]
  7. ALENDRONATE SODIUM [Concomitant]
  8. ROFECOXIB [Concomitant]

REACTIONS (1)
  - HEADACHE [None]
